FAERS Safety Report 8519629-4 (Version None)
Quarter: 2012Q3

REPORT INFORMATION
  Report Type: 
  Country: None (occurrence: None)
  Receive Date: 20120718
  Receipt Date: 20120709
  Transmission Date: 20120928
  Serious: Yes (Disabling, Other)
  Sender: FDA-Public Use
  Company Number: US-ALLERGAN-0908476US

PATIENT
  Age: 39 Year
  Sex: Female

DRUGS (3)
  1. BOTOX COSMETIC [Suspect]
     Indication: SKIN WRINKLING
     Dosage: 24 UNITS, SINGLE
     Route: 030
     Dates: start: 20090611, end: 20090611
  2. NASACORT [Concomitant]
     Indication: SEASONAL ALLERGY
  3. ALLEGRA [Concomitant]

REACTIONS (20)
  - HYPOAESTHESIA [None]
  - MYALGIA [None]
  - RESPIRATORY TRACT INFECTION [None]
  - NAUSEA [None]
  - CHILLS [None]
  - SINUSITIS [None]
  - FATIGUE [None]
  - ABDOMINAL PAIN UPPER [None]
  - MUSCLE SPASMS [None]
  - PARAESTHESIA [None]
  - PYREXIA [None]
  - VISION BLURRED [None]
  - HYPERAESTHESIA [None]
  - INFLUENZA LIKE ILLNESS [None]
  - FEELING ABNORMAL [None]
  - HEADACHE [None]
  - PANIC ATTACK [None]
  - ASTHENIA [None]
  - ABDOMINAL DISCOMFORT [None]
  - IMMUNE SYSTEM DISORDER [None]
